APPROVED DRUG PRODUCT: SULFISOXAZOLE
Active Ingredient: SULFISOXAZOLE
Strength: 500MG
Dosage Form/Route: TABLET;ORAL
Application: A080268 | Product #002
Applicant: VALEANT PHARMACEUTICALS INTERNATIONAL
Approved: Approved Prior to Jan 1, 1982 | RLD: No | RS: No | Type: DISCN